FAERS Safety Report 19533982 (Version 1)
Quarter: 2021Q3

REPORT INFORMATION
  Report Type: Spontaneous
  Country: DE (occurrence: DE)
  Receive Date: 20210713
  Receipt Date: 20210713
  Transmission Date: 20211014
  Serious: Yes (Hospitalization)
  Sender: FDA-Public Use
  Company Number: DE-MYLANLABS-2021M1040662

PATIENT
  Age: 73 Year
  Sex: Male

DRUGS (17)
  1. PANTOPRAZOL                        /01263201/ [Concomitant]
     Active Substance: PANTOPRAZOLE
     Dosage: UNK (40 MG, 1?0?0?0)
  2. METOPROLOL. [Concomitant]
     Active Substance: METOPROLOL
     Dosage: UNK (47.5 MG, 2?0?1?0)
  3. AMLODIPIN                          /00972401/ [Concomitant]
     Active Substance: AMLODIPINE BESYLATE
     Dosage: UNK (5 MG, 1?0?1?0)
  4. ATORVASTATIN [Concomitant]
     Active Substance: ATORVASTATIN
     Dosage: UNK (20 MG, 0?0?1?0)
  5. PREDNISOLONE. [Suspect]
     Active Substance: PREDNISOLONE
     Indication: PRODUCT USED FOR UNKNOWN INDICATION
     Dosage: UNK (5 MG, 1?0?0?0)
  6. MINOCYCLINE [Concomitant]
     Active Substance: MINOCYCLINE HYDROCHLORIDE
     Dosage: UNK (50 MG/2TAG, 1?0?0?0)
  7. ACETYLSALICYLIC ACID [Suspect]
     Active Substance: ASPIRIN
     Indication: PRODUCT USED FOR UNKNOWN INDICATION
     Dosage: UNK (100 MG, 0?1?0?0)
  8. SYMBICORT [Concomitant]
     Active Substance: BUDESONIDE\FORMOTEROL FUMARATE DIHYDRATE
     Dosage: UNK (160|4.5 ?G, 1?0?1?0)
  9. VALSARTAN. [Concomitant]
     Active Substance: VALSARTAN
     Dosage: UNK (160 MG, 1?0?1?0)
  10. CLOPIDOGREL [Suspect]
     Active Substance: CLOPIDOGREL BISULFATE
     Indication: PRODUCT USED FOR UNKNOWN INDICATION
     Dosage: UNK (75 MG, 1?0?0?0)
  11. METFORMIN [Concomitant]
     Active Substance: METFORMIN HYDROCHLORIDE
     Dosage: 1000 MG, 1?0?1?0
  12. MONTELUKAST [Concomitant]
     Active Substance: MONTELUKAST SODIUM
     Dosage: UNK (10 MG, 0?0?1?0)
  13. TAMSULOSIN [Concomitant]
     Active Substance: TAMSULOSIN
     Dosage: UNK (0.4 MG, 1?0?0?0)
  14. LIXIANA [Suspect]
     Active Substance: EDOXABAN TOSYLATE
     Indication: PRODUCT USED FOR UNKNOWN INDICATION
     Dosage: UNK (30 MG, 1?0?0?0)
  15. TORASEMID [Concomitant]
     Active Substance: TORSEMIDE
     Dosage: UNK (5 MG, 1?0?0?0)
  16. DAPAGLIFLOZIN. [Concomitant]
     Active Substance: DAPAGLIFLOZIN
     Dosage: UNK (5 MG, 1?0?1?0)
  17. INSULIN DETEMIR [Concomitant]
     Active Substance: INSULIN DETEMIR
     Dosage: UNK (14 IE, 0?0?1?0)

REACTIONS (4)
  - General physical health deterioration [Unknown]
  - Haematoma [Unknown]
  - Skin irritation [Unknown]
  - Oedema peripheral [Unknown]
